FAERS Safety Report 9128234 (Version 2)
Quarter: 2013Q1

REPORT INFORMATION
  Report Type: Spontaneous
  Country: CA (occurrence: CA)
  Receive Date: 20130125
  Receipt Date: 20130325
  Transmission Date: 20140127
  Serious: Yes (Other)
  Sender: FDA-Public Use
  Company Number: PHHY2013CA006872

PATIENT
  Sex: Female

DRUGS (8)
  1. ACLASTA [Suspect]
     Indication: OSTEOPOROSIS
     Dosage: 5 MG, UNK
     Route: 042
     Dates: start: 20100204
  2. ACLASTA [Suspect]
     Dosage: 5 MG, UNK
     Route: 042
     Dates: start: 20110310
  3. ACLASTA [Suspect]
     Dosage: 5 MG, UNK
     Route: 042
     Dates: start: 20120315
  4. SYNTHROID [Concomitant]
     Dosage: UNK UKN, UNK
  5. VALTREX [Concomitant]
     Dosage: UNK UKN, UNK
  6. OXYBUTYNIN [Concomitant]
     Dosage: UNK UKN, UNK
  7. SALOFALK [Concomitant]
     Dosage: UNK UKN, UNK
  8. TRAMADOL [Concomitant]
     Dosage: UNK UKN, PRN

REACTIONS (1)
  - Haemochromatosis [Unknown]
